FAERS Safety Report 4514161-7 (Version None)
Quarter: 2004Q4

REPORT INFORMATION
  Report Type: 
  Country: None (occurrence: None)
  Receive Date: 20041124
  Receipt Date: 20041112
  Transmission Date: 20050328
  Serious: Yes (Other)
  Sender: FDA-Public Use
  Company Number: 240493

PATIENT
  Age: 33 Year
  Sex: Male

DRUGS (2)
  1. NOVORAPID CHU (INSULIN ASPART) SOLUTION FOR INJECTION, 100U/ML [Suspect]
     Indication: ILL-DEFINED DISORDER
     Dates: start: 20041105
  2. HUMULIN R SUSPENSION FOR INJECTION [Concomitant]

REACTIONS (3)
  - ALANINE AMINOTRANSFERASE INCREASED [None]
  - ASPARTATE AMINOTRANSFERASE INCREASED [None]
  - HEPATIC FUNCTION ABNORMAL [None]
